FAERS Safety Report 5408458-6 (Version None)
Quarter: 2007Q3

REPORT INFORMATION
  Report Type: 
  Country: None (occurrence: None)
  Receive Date: 20070808
  Receipt Date: 20070806
  Transmission Date: 20080115
  Serious: Yes (Other)
  Sender: FDA-Public Use
  Company Number: US-JNJFOC-20070801324

PATIENT
  Age: 70 Year
  Sex: Female
  Weight: 38.56 kg

DRUGS (3)
  1. EXTRA STRENGTH TYLENOL [Suspect]
     Route: 048
  2. EXTRA STRENGTH TYLENOL [Suspect]
     Indication: STOMACH DISCOMFORT
     Route: 048
  3. MYLANTA [Suspect]
     Indication: STOMACH DISCOMFORT
     Route: 048

REACTIONS (2)
  - HALLUCINATION, VISUAL [None]
  - STOMACH DISCOMFORT [None]
